FAERS Safety Report 22631349 (Version 1)
Quarter: 2023Q2

REPORT INFORMATION
  Report Type: Spontaneous
  Country: PL (occurrence: PL)
  Receive Date: 20230623
  Receipt Date: 20230623
  Transmission Date: 20230721
  Serious: Yes (Other)
  Sender: FDA-Public Use
  Company Number: PL-002147023-NVSC2023PL139183

PATIENT
  Age: 28 Year
  Sex: Female

DRUGS (1)
  1. METHOTREXATE [Suspect]
     Active Substance: METHOTREXATE
     Indication: Systemic scleroderma
     Dosage: 25 MG, QW (25 MG PER WEEK)
     Route: 065

REACTIONS (3)
  - Systemic scleroderma [Unknown]
  - Disease progression [Unknown]
  - Product use in unapproved indication [Unknown]
